FAERS Safety Report 8973529 (Version 1)
Quarter: 2012Q4

REPORT INFORMATION
  Report Type: 
  Country: FR (occurrence: FR)
  Receive Date: 20121219
  Receipt Date: 20121219
  Transmission Date: 20130627
  Serious: Yes (Other)
  Sender: FDA-Public Use
  Company Number: FR-JNJFOC-20121110277

PATIENT
  Age: 63 Year
  Sex: Female
  Weight: 79 kg

DRUGS (1)
  1. ALOSTIL [Suspect]
     Indication: ALOPECIA
     Dosage: one dosage form
     Route: 061
     Dates: start: 20121023, end: 20121024

REACTIONS (2)
  - Hypersensitivity [Recovered/Resolved]
  - Wrong drug administered [Unknown]
